FAERS Safety Report 4997570-1 (Version None)
Quarter: 2006Q1

REPORT INFORMATION
  Report Type: 
  Country: None (occurrence: None)
  Receive Date: 20060315
  Receipt Date: 20051205
  Transmission Date: 20060701
  Serious: Yes (Other)
  Sender: FDA-Public Use
  Company Number: 427600

PATIENT
  Age: 52 Year

DRUGS (2)
  1. BONIVA [Suspect]
     Indication: DRUG USE FOR UNKNOWN INDICATION
     Dosage: 1 PER MONTH ORAL
     Route: 048
     Dates: start: 20051115
  2. FOSAMAX [Concomitant]

REACTIONS (2)
  - DRUG ADMINISTRATION ERROR [None]
  - OESOPHAGITIS [None]
